FAERS Safety Report 18259649 (Version 3)
Quarter: 2020Q4

REPORT INFORMATION
  Report Type: Report from Study
  Country: None (occurrence: CO)
  Receive Date: 20200912
  Receipt Date: 20201028
  Transmission Date: 20210113
  Serious: Yes (Hospitalization, Other)
  Sender: FDA-Public Use
  Company Number: CO-ABBVIE-20K-036-3562351-00

PATIENT
  Age: 44 Year
  Sex: Male
  Weight: 70 kg

DRUGS (2)
  1. ZEMPLAR [Suspect]
     Active Substance: PARICALCITOL
     Indication: CHRONIC KIDNEY DISEASE
  2. ZEMPLAR [Suspect]
     Active Substance: PARICALCITOL
     Indication: HYPERPARATHYROIDISM SECONDARY
     Dosage: POST DIALYSIS
     Route: 042
     Dates: start: 20190827, end: 20200411

REACTIONS (11)
  - Haematochezia [Recovering/Resolving]
  - Pyrexia [Recovering/Resolving]
  - Intestinal haemorrhage [Recovering/Resolving]
  - Asthenia [Recovering/Resolving]
  - Umbilical hernia [Recovering/Resolving]
  - Diarrhoea [Recovering/Resolving]
  - Asthenia [Recovered/Resolved]
  - Cough [Recovering/Resolving]
  - Wound complication [Recovering/Resolving]
  - Wound [Unknown]
  - Abdominal hernia [Recovering/Resolving]

NARRATIVE: CASE EVENT DATE: 2020
